FAERS Safety Report 8595356-2 (Version None)
Quarter: 2012Q3

REPORT INFORMATION
  Report Type: 
  Country: None (occurrence: None)
  Receive Date: 20120815
  Receipt Date: 20120809
  Transmission Date: 20120928
  Serious: Yes (Death)
  Sender: FDA-Public Use
  Company Number: DE-CELGENEUS-062-21880-12050284

PATIENT

DRUGS (5)
  1. ACYCLOVIR [Suspect]
     Indication: ANTIVIRAL PROPHYLAXIS
     Route: 065
  2. CIPROFLOXACIN [Concomitant]
     Route: 065
  3. REVLIMID [Suspect]
     Indication: MULTIPLE MYELOMA
     Route: 048
  4. FLUCONAZOLE [Concomitant]
     Route: 065
  5. POSACONAZOLE [Concomitant]
     Route: 065

REACTIONS (1)
  - FUNGAL INFECTION [None]
